FAERS Safety Report 25332626 (Version 1)
Quarter: 2025Q2

REPORT INFORMATION
  Report Type: Spontaneous
  Country: US (occurrence: US)
  Receive Date: 20250519
  Receipt Date: 20250519
  Transmission Date: 20250716
  Serious: No
  Sender: NOVO NORDISK
  Company Number: US-NOVOPROD-1219153

PATIENT
  Sex: Male

DRUGS (2)
  1. INSULIN NOS [Suspect]
     Active Substance: INSULIN NOS
     Indication: Product used for unknown indication
     Route: 058
  2. NORDITROPIN [Suspect]
     Active Substance: SOMATROPIN
     Indication: Product used for unknown indication

REACTIONS (1)
  - Androgen deficiency [Unknown]
